FAERS Safety Report 10173238 (Version 1)
Quarter: 2014Q2

REPORT INFORMATION
  Report Type: Spontaneous
  Country: FR (occurrence: None)
  Receive Date: 20140513
  Receipt Date: 20140513
  Transmission Date: 20141212
  Serious: Yes (Hospitalization)
  Sender: FDA-Public Use
  Company Number: FR-JNJFOC-20140501424

PATIENT
  Age: 78 Year
  Sex: Female

DRUGS (10)
  1. DACOGEN [Suspect]
     Indication: PRODUCT USED FOR UNKNOWN INDICATION
     Dosage: 20 MG/M2, 1 IN 28 DAY, INTRAVENOUS
     Route: 042
     Dates: start: 20130812, end: 20130816
  2. CRESTOR [Suspect]
     Indication: PRODUCT USED FOR UNKNOWN INDICATION
     Route: 048
  3. SEVIKAR (ANTIHYPERTENSIVES) [Concomitant]
  4. KARDEGIC (ACETYLSALICYLATE LYSINE) [Concomitant]
  5. NEBIVOLOL [Concomitant]
  6. NOVONORM (REPAGLINIDE) [Concomitant]
  7. ADANCOR (NICORANDIL) [Concomitant]
  8. PANTOPRAZOLE [Concomitant]
  9. PARACETAMOL [Concomitant]
  10. TRANSILANE [Concomitant]

REACTIONS (11)
  - Pyrexia [None]
  - Lung disorder [None]
  - Hypoxia [None]
  - Pleural fibrosis [None]
  - Obliterative bronchiolitis [None]
  - Cough [None]
  - Weight decreased [None]
  - Crepitations [None]
  - Influenza virus test positive [None]
  - Pulmonary haemorrhage [None]
  - Inflammation [None]
